FAERS Safety Report 24104692 (Version 1)
Quarter: 2024Q3

REPORT INFORMATION
  Report Type: Spontaneous
  Country: IT (occurrence: IT)
  Receive Date: 20240717
  Receipt Date: 20240717
  Transmission Date: 20241017
  Serious: Yes (Death, Other)
  Sender: BIOVITRUM
  Company Number: IT-BIOVITRUM-2024-IT-009919

PATIENT

DRUGS (1)
  1. GAMIFANT [Suspect]
     Active Substance: EMAPALUMAB-LZSG
     Indication: Product used for unknown indication

REACTIONS (2)
  - Cytomegalovirus syndrome [Fatal]
  - Systemic lupus erythematosus [Fatal]
